FAERS Safety Report 8633399 (Version 2)
Quarter: 2012Q4

REPORT INFORMATION
  Report Type: 
  Country: US (occurrence: US)
  Receive Date: 20120625
  Receipt Date: 20120912
  Transmission Date: 20130627
  Serious: No
  Sender: FDA-Public Use
  Company Number: US-PFIZER INC-2012147793

PATIENT
  Age: 74 Year
  Sex: Male
  Weight: 80.27 kg

DRUGS (4)
  1. VIAGRA [Suspect]
     Indication: ERECTILE DYSFUNCTION
     Dosage: 100 mg, monthly
     Route: 048
     Dates: start: 2008, end: 2012
  2. VIAGRA [Suspect]
     Dosage: 200 mg, monthly
     Route: 048
     Dates: end: 201206
  3. FOSINOPRIL SODIUM [Concomitant]
     Indication: HYPERTENSION
     Dosage: 10 mg, daily
  4. AMLODIPINE [Concomitant]
     Indication: HYPERTENSION
     Dosage: 5 mg, daily

REACTIONS (2)
  - Expired drug administered [Unknown]
  - Drug ineffective [Unknown]
